FAERS Safety Report 10995568 (Version 2)
Quarter: 2015Q2

REPORT INFORMATION
  Report Type: Spontaneous
  Country: US (occurrence: US)
  Receive Date: 20150407
  Receipt Date: 20150427
  Transmission Date: 20150821
  Serious: Yes (Hospitalization, Other)
  Sender: FDA-Public Use
  Company Number: US-GLAXOSMITHKLINE-US2015045701

PATIENT
  Age: 79 Year
  Sex: Female

DRUGS (4)
  1. COREG [Concomitant]
     Active Substance: CARVEDILOL
  2. SPIRIVA [Concomitant]
     Active Substance: TIOTROPIUM BROMIDE MONOHYDRATE
  3. LASIX [Concomitant]
     Active Substance: FUROSEMIDE
  4. ADVAIR DISKUS [Suspect]
     Active Substance: FLUTICASONE PROPIONATE\SALMETEROL XINAFOATE
     Indication: PNEUMONIA
     Dosage: 1 PUFF(S), BID
     Route: 055
     Dates: start: 2009

REACTIONS (4)
  - Cardiac pacemaker insertion [Recovered/Resolved]
  - Influenza [Recovered/Resolved]
  - Atrial fibrillation [Unknown]
  - Pneumonia [Recovered/Resolved]

NARRATIVE: CASE EVENT DATE: 20141229
